FAERS Safety Report 10483046 (Version 3)
Quarter: 2015Q2

REPORT INFORMATION
  Report Type: Report from Study
  Country: US (occurrence: US)
  Receive Date: 20140930
  Receipt Date: 20150626
  Transmission Date: 20150821
  Serious: Yes (Death, Life-Threatening, Hospitalization)
  Sender: FDA-Public Use
  Company Number: US-UCBSA-8013057

PATIENT
  Age: 59 Year
  Sex: Female

DRUGS (9)
  1. VITAMIN E, C [Concomitant]
     Indication: SUPPLEMENTATION THERAPY
     Dates: start: 20050221
  2. CERTOLIZUMAB PEGOL RA [Suspect]
     Active Substance: CERTOLIZUMAB PEGOL
     Indication: RHEUMATOID ARTHRITIS
     Dosage: 400 MG, MONTHLY (QM) NO OF DOSES :24
     Route: 058
     Dates: start: 20031215, end: 20051017
  3. TYLENOL [Concomitant]
     Active Substance: ACETAMINOPHEN
     Indication: PAIN
     Dosage: 1 TABLET PRN
     Route: 048
     Dates: start: 20051011
  4. PHENOXYMETHYLPENICILLIN POTASSIUM [Concomitant]
     Active Substance: PENICILLIN V POTASSIUM
     Indication: PHARYNGITIS
     Dosage: DOSE FREQ.: DAILY
     Route: 048
     Dates: start: 20050919, end: 20050928
  5. MULTIVITAMIN [Concomitant]
     Active Substance: VITAMINS
     Indication: SUPPLEMENTATION THERAPY
     Dosage: 1 TABLET PRN
     Dates: start: 20050221
  6. PREDNISONE. [Concomitant]
     Active Substance: PREDNISONE
     Indication: RHEUMATOID ARTHRITIS
     Dosage: 35 MG, ONCE DAILY (QD)
     Route: 048
     Dates: start: 20051008
  7. CEFTRIAXONE SODIUM. [Concomitant]
     Active Substance: CEFTRIAXONE SODIUM
     Indication: PHARYNGITIS
     Route: 030
     Dates: start: 20051005, end: 20051005
  8. FOLIC ACID. [Concomitant]
     Active Substance: FOLIC ACID
     Indication: SUPPLEMENTATION THERAPY
     Dosage: 1600 MG, ONCE DAILY (QD)
     Route: 048
     Dates: start: 20050221
  9. LEVOFLOXACIN. [Concomitant]
     Active Substance: LEVOFLOXACIN
     Indication: PHARYNGITIS
     Route: 048
     Dates: start: 20051005, end: 20051010

REACTIONS (3)
  - Diffuse large B-cell lymphoma [Not Recovered/Not Resolved]
  - Neutropenic sepsis [Recovered/Resolved]
  - Tonsil cancer [Fatal]

NARRATIVE: CASE EVENT DATE: 20051014
